FAERS Safety Report 13159269 (Version 1)
Quarter: 2017Q1

REPORT INFORMATION
  Report Type: Spontaneous
  Country: US (occurrence: US)
  Receive Date: 20170127
  Receipt Date: 20170127
  Transmission Date: 20170428
  Serious: Yes (Other)
  Sender: FDA-Public Use
  Company Number: US-PFIZER INC-2017031443

PATIENT
  Age: 47 Year
  Weight: 104 kg

DRUGS (1)
  1. VIAGRA [Suspect]
     Active Substance: SILDENAFIL CITRATE
     Indication: ERECTILE DYSFUNCTION
     Dosage: 25 MG, 1X/DAY, AT NIGHT
     Route: 048
     Dates: start: 201609

REACTIONS (3)
  - Erection increased [Unknown]
  - Semen volume increased [Unknown]
  - Ejaculation disorder [Unknown]
